FAERS Safety Report 6494205-6 (Version None)
Quarter: 2009Q4

REPORT INFORMATION
  Report Type: 
  Country: None (occurrence: None)
  Receive Date: 20091214
  Receipt Date: 20090227
  Transmission Date: 20100525
  Serious: No
  Sender: FDA-Public Use
  Company Number: US-BRISTOL-MYERS SQUIBB COMPANY-14478440

PATIENT
  Age: 37 Year
  Sex: Female

DRUGS (4)
  1. ABILIFY [Suspect]
     Route: 048
     Dates: start: 20081210
  2. PAXIL [Suspect]
  3. ROZEREM [Concomitant]
  4. BUSPAR [Concomitant]

REACTIONS (2)
  - CONTUSION [None]
  - EPISTAXIS [None]
